FAERS Safety Report 5325734-6 (Version None)
Quarter: 2007Q2

REPORT INFORMATION
  Report Type: 
  Country: None (occurrence: None)
  Receive Date: 20070515
  Receipt Date: 20070514
  Transmission Date: 20071010
  Serious: Yes (Hospitalization)
  Sender: FDA-Public Use
  Company Number: US-MERCK-0703USA04553

PATIENT
  Age: 80 Year
  Sex: Male

DRUGS (7)
  1. COZAAR [Suspect]
     Indication: HYPERTENSION
     Route: 048
     Dates: start: 20020101
  2. ZOCOR [Concomitant]
     Route: 048
  3. LOPRESSOR [Concomitant]
     Route: 065
  4. FELODIPINE [Concomitant]
     Route: 065
  5. CHLORTHALIDONE [Concomitant]
     Route: 065
  6. DILANTIN [Concomitant]
     Route: 065
  7. [THERAPY UNSPECIFIED] [Concomitant]
     Route: 065

REACTIONS (1)
  - BLOOD PRESSURE INCREASED [None]
